FAERS Safety Report 16319660 (Version 1)
Quarter: 2019Q2

REPORT INFORMATION
  Report Type: Spontaneous
  Country: GB (occurrence: GB)
  Receive Date: 20190516
  Receipt Date: 20190516
  Transmission Date: 20190711
  Serious: Yes (Other)
  Sender: FDA-Public Use
  Company Number: GB-TEVA-2019-GB-1049959

PATIENT
  Age: 21 Year
  Sex: Male
  Weight: 59 kg

DRUGS (1)
  1. CLARITHROMYCIN. [Suspect]
     Active Substance: CLARITHROMYCIN
     Dosage: FOR 7 DAYS
     Dates: start: 20190403, end: 20190410

REACTIONS (2)
  - Lip swelling [Recovered/Resolved]
  - Swollen tongue [Recovered/Resolved]

NARRATIVE: CASE EVENT DATE: 20190403
